FAERS Safety Report 4299871-1 (Version None)
Quarter: 2004Q1

REPORT INFORMATION
  Report Type: 
  Country: None (occurrence: None)
  Receive Date: 20040217
  Receipt Date: 20040131
  Transmission Date: 20041129
  Serious: Yes (Death)
  Sender: FDA-Public Use
  Company Number: 2004IC000024

PATIENT
  Age: 30 Year
  Sex: 0

DRUGS (3)
  1. DALMANE [Suspect]
  2. BENZTROPINE MESYLATE [Suspect]
  3. QUETIAPINE [Suspect]

REACTIONS (1)
  - MULTIPLE DRUG OVERDOSE [None]
